FAERS Safety Report 24650319 (Version 2)
Quarter: 2024Q4

REPORT INFORMATION
  Report Type: Other
  Country: MX (occurrence: MX)
  Receive Date: 20241122
  Receipt Date: 20241205
  Transmission Date: 20250115
  Serious: Yes (Death, Hospitalization)
  Sender: ALVOGEN
  Company Number: MX-ALVOGEN-2024095827

PATIENT
  Age: 61 Year
  Sex: Male

DRUGS (1)
  1. DOXORUBICIN [Suspect]
     Active Substance: DOXORUBICIN
     Indication: Prostate sarcoma

REACTIONS (2)
  - Haematotoxicity [Fatal]
  - Febrile neutropenia [Fatal]
